FAERS Safety Report 9406208 (Version 1)
Quarter: 2013Q3

REPORT INFORMATION
  Report Type: Spontaneous
  Country: GB (occurrence: GB)
  Receive Date: 20130717
  Receipt Date: 20130717
  Transmission Date: 20140515
  Serious: Yes (Disabling, Other)
  Sender: FDA-Public Use
  Company Number: GB-009507513-1307GBR007269

PATIENT
  Age: 86 Year
  Sex: Male
  Weight: 62 kg

DRUGS (13)
  1. NORFLOXACIN [Suspect]
     Indication: CHOLANGITIS
     Dosage: 200 MG, UNK
     Route: 048
     Dates: start: 201203, end: 201305
  2. ASPIRIN [Concomitant]
     Dosage: 75 MG, QD
  3. CALCEOS [Concomitant]
     Dosage: 1 DF, BID
     Route: 048
  4. CLONAZEPAM [Concomitant]
     Dosage: 250 MG, QD
     Dates: start: 20130522
  5. CLONAZEPAM [Concomitant]
     Dosage: 500 MG, QD
     Dates: end: 20130521
  6. CONOTRANE (BENZALKONIUM CHLORIDE (+) DIMETHICONE) [Concomitant]
     Dosage: UNK, AS NECESSARY
  7. LANSOPRAZOLE [Concomitant]
     Dosage: 15 MG, QD
  8. LAXIDO [Concomitant]
     Indication: CONSTIPATION
     Dosage: 1 DF, QD
     Route: 048
  9. ACETAMINOPHEN [Concomitant]
     Dosage: 500 MG, BID
  10. ALBUTEROL [Concomitant]
     Indication: ASTHMA
     Dosage: 100 MICROGRAM, AS NECESSITY
     Route: 055
     Dates: start: 20120207
  11. SERETIDE [Concomitant]
     Dosage: 2 DF, BID
  12. SIMVASTATIN [Concomitant]
     Dosage: 40 MG, QD
  13. URSODIOL [Concomitant]
     Dosage: 25 MG, BID

REACTIONS (7)
  - Memory impairment [Unknown]
  - Hallucination [Recovered/Resolved]
  - Agitation [Unknown]
  - Anger [Recovered/Resolved]
  - Confusional state [Recovered/Resolved]
  - Disorientation [Unknown]
  - Poor quality sleep [Recovered/Resolved]
